FAERS Safety Report 17225805 (Version 6)
Quarter: 2020Q4

REPORT INFORMATION
  Report Type: Spontaneous
  Country: US (occurrence: US)
  Receive Date: 20200102
  Receipt Date: 20201012
  Transmission Date: 20210113
  Serious: Yes (Hospitalization)
  Sender: FDA-Public Use
  Company Number: NVSC2019US084176

PATIENT
  Age: 70 Year
  Sex: Female

DRUGS (2)
  1. PROMACTA [Suspect]
     Active Substance: ELTROMBOPAG OLAMINE
     Dosage: 50 MG, QD
     Route: 048
     Dates: start: 202008
  2. PROMACTA [Suspect]
     Active Substance: ELTROMBOPAG OLAMINE
     Indication: IMMUNE THROMBOCYTOPENIA
     Dosage: 50 MG, QD
     Route: 048
     Dates: start: 20191205

REACTIONS (11)
  - Chapped lips [Unknown]
  - Nausea [Unknown]
  - Oesophageal varices haemorrhage [Unknown]
  - Lip haemorrhage [Unknown]
  - Oral discomfort [Unknown]
  - Feeling abnormal [Unknown]
  - Back pain [Unknown]
  - Dizziness [Unknown]
  - Headache [Unknown]
  - Hypersensitivity [Unknown]
  - Mental disorder [Unknown]

NARRATIVE: CASE EVENT DATE: 20200807
